FAERS Safety Report 7875504-X (Version None)
Quarter: 2011Q4

REPORT INFORMATION
  Report Type: 
  Country: None (occurrence: None)
  Receive Date: 20111031
  Receipt Date: 20111025
  Transmission Date: 20120403
  Serious: Yes (Other)
  Sender: FDA-Public Use
  Company Number: NZ-B.I. PHARMACEUTICALS,INC./RIDGEFIELD-2011-AU-01958AU

PATIENT

DRUGS (1)
  1. PRADAXA [Suspect]

REACTIONS (1)
  - CARDIAC FAILURE [None]
